FAERS Safety Report 7804737-3 (Version None)
Quarter: 2011Q4

REPORT INFORMATION
  Report Type: 
  Country: None (occurrence: None)
  Receive Date: 20111010
  Receipt Date: 20110929
  Transmission Date: 20120403
  Serious: Yes (Hospitalization)
  Sender: FDA-Public Use
  Company Number: AR-NOVOPROD-327637

PATIENT

DRUGS (4)
  1. LEVOTHYROXINE SODIUM [Concomitant]
     Dosage: 175 MG, QD
     Route: 048
     Dates: start: 19980101
  2. INSULATARD FLEXPEN [Suspect]
     Indication: TYPE 1 DIABETES MELLITUS
     Dosage: 65 IU, QD
     Route: 058
     Dates: start: 20110201
  3. FOLIC ACID [Concomitant]
     Dosage: UNK
     Route: 048
     Dates: start: 20110301
  4. ACTRAPID HM PENFILL [Suspect]
     Indication: TYPE 1 DIABETES MELLITUS
     Dosage: 7-9 IU, QD
     Route: 058
     Dates: start: 20110201

REACTIONS (3)
  - HYPERTENSION [None]
  - MATERNAL EXPOSURE DURING PREGNANCY [None]
  - HYPERGLYCAEMIA [None]
